FAERS Safety Report 8427358-0 (Version None)
Quarter: 2012Q2

REPORT INFORMATION
  Report Type: 
  Country: None (occurrence: None)
  Receive Date: 20120611
  Receipt Date: 20120605
  Transmission Date: 20120825
  Serious: No
  Sender: FDA-Public Use
  Company Number: US-PFIZER INC-2012119612

PATIENT

DRUGS (8)
  1. INH [Suspect]
     Dosage: UNK
  2. PROMETHAZINE HYDROCHLORIDE [Suspect]
     Dosage: UNK
  3. ZITHROMAX [Suspect]
     Dosage: UNK
  4. RIFAMPIN [Suspect]
     Dosage: UNK
  5. HYDROCHLOROTHIAZIDE [Suspect]
     Dosage: UNK
  6. CINOBAC [Suspect]
     Dosage: UNK
  7. CODEINE SULFATE [Suspect]
     Dosage: UNK
  8. VANCOMYCIN HYCHLORIDE [Suspect]
     Dosage: UNK

REACTIONS (1)
  - HYPERSENSITIVITY [None]
